FAERS Safety Report 24361808 (Version 2)
Quarter: 2024Q3

REPORT INFORMATION
  Report Type: Spontaneous
  Country: US (occurrence: US)
  Receive Date: 20240925
  Receipt Date: 20240927
  Transmission Date: 20241017
  Serious: Yes (Other)
  Sender: PFIZER
  Company Number: US-MLMSERVICE-20240913-PI192872-00312-1

PATIENT
  Age: 22 Year
  Sex: Female

DRUGS (3)
  1. TESTOSTERONE CYPIONATE [Suspect]
     Active Substance: TESTOSTERONE CYPIONATE
     Indication: Transgender hormonal therapy
     Dosage: HIGH-DOSE TESTOSTERONE INJECTIONS
     Route: 030
  2. NORETHINDRONE [Concomitant]
     Active Substance: NORETHINDRONE
     Indication: Hormone suppression therapy
     Dosage: UNK
     Route: 048
  3. NORETHINDRONE [Concomitant]
     Active Substance: NORETHINDRONE
     Indication: Uterine haemorrhage

REACTIONS (2)
  - Hepatic adenoma [Recovering/Resolving]
  - Haemorrhagic tumour necrosis [Recovered/Resolved]
